FAERS Safety Report 9262970 (Version 1)
Quarter: 2013Q2

REPORT INFORMATION
  Report Type: Spontaneous
  Country: NL (occurrence: None)
  Receive Date: 20130422
  Receipt Date: 20130422
  Transmission Date: 20140414
  Serious: Yes (Hospitalization)
  Sender: FDA-Public Use
  Company Number: 2013035437

PATIENT
  Age: 28 Year
  Sex: Female

DRUGS (2)
  1. IVIG (IMMUNE GLOBULIN INTRAVENOUS (HUMAN) 10% LIQUID) [Suspect]
     Indication: IMMUNODEFICIENCY COMMON VARIABLE
     Route: 042
  2. IVIG (IMMUNE GLOBULIN INTRAVENOUS (HUMAN) 10% LIQUID) [Suspect]
     Indication: HYPOGAMMAGLOBULINAEMIA
     Route: 042

REACTIONS (9)
  - Anaphylactic shock [None]
  - Abdominal pain [None]
  - Nausea [None]
  - Rash generalised [None]
  - Respiratory rate increased [None]
  - Tachycardia [None]
  - Blood pressure systolic inspiratory decreased [None]
  - Chills [None]
  - Pyrexia [None]
